FAERS Safety Report 19359099 (Version 1)
Quarter: 2021Q2

REPORT INFORMATION
  Report Type: Spontaneous
  Country: US (occurrence: US)
  Receive Date: 20210601
  Receipt Date: 20210601
  Transmission Date: 20210717
  Serious: Yes (Other)
  Sender: FDA-Public Use
  Company Number: US-GLAXOSMITHKLINE-US2021GSK114869

PATIENT
  Sex: Female

DRUGS (12)
  1. ZANTAC [Suspect]
     Active Substance: RANITIDINE HYDROCHLORIDE
     Indication: PRURITUS
  2. RANITIDINE CAPSULE [Suspect]
     Active Substance: RANITIDINE
     Indication: PRURITUS
  3. ZANTAC [Suspect]
     Active Substance: RANITIDINE HYDROCHLORIDE
     Indication: URTICARIA
     Dosage: UNK, QD
     Route: 065
     Dates: start: 198901, end: 199101
  4. RANITIDINE. [Suspect]
     Active Substance: RANITIDINE
     Indication: URTICARIA
     Dosage: UNK, QD
     Route: 065
     Dates: start: 200401, end: 201501
  5. RANITIDINE. [Suspect]
     Active Substance: RANITIDINE
     Indication: URTICARIA
     Dosage: UNK UNK, QD
     Route: 065
     Dates: start: 200401, end: 201501
  6. RANITIDINE. [Suspect]
     Active Substance: RANITIDINE
     Indication: URTICARIA
     Dosage: UNK, QD
     Route: 065
     Dates: start: 200401, end: 201501
  7. RANITIDINE CAPSULE [Suspect]
     Active Substance: RANITIDINE
     Indication: URTICARIA
     Dosage: UNK, QD
     Route: 065
     Dates: start: 200401, end: 201501
  8. ZANTAC [Suspect]
     Active Substance: RANITIDINE HYDROCHLORIDE
     Indication: URTICARIA
     Dosage: UNK, QD
     Route: 065
     Dates: start: 198901, end: 199101
  9. RANITIDINE. [Suspect]
     Active Substance: RANITIDINE
     Indication: PRURITUS
  10. RANITIDINE. [Suspect]
     Active Substance: RANITIDINE
     Indication: PRURITUS
  11. RANITIDINE. [Suspect]
     Active Substance: RANITIDINE
     Indication: PRURITUS
  12. ZANTAC [Suspect]
     Active Substance: RANITIDINE HYDROCHLORIDE
     Indication: PRURITUS

REACTIONS (1)
  - Gastric cancer [Unknown]
